FAERS Safety Report 13339533 (Version 1)
Quarter: 2017Q1

REPORT INFORMATION
  Report Type: Report from Study
  Country: US (occurrence: US)
  Receive Date: 20170315
  Receipt Date: 20170315
  Transmission Date: 20170428
  Serious: Yes (Hospitalization)
  Sender: FDA-Public Use
  Company Number: US-ACTELION-A-US2016-133568

PATIENT
  Age: 45 Year
  Sex: Female

DRUGS (13)
  1. OPSUMIT [Suspect]
     Active Substance: MACITENTAN
     Indication: PULMONARY ARTERIAL HYPERTENSION
     Dosage: 10 MG, UNK
     Route: 048
     Dates: start: 20160105
  2. CEPHALEXIN. [Concomitant]
     Active Substance: CEPHALEXIN
  3. METRONIDAZOLE. [Concomitant]
     Active Substance: METRONIDAZOLE
  4. TERCONAZOLE. [Concomitant]
     Active Substance: TERCONAZOLE
  5. SENSIPAR [Concomitant]
     Active Substance: CINACALCET HYDROCHLORIDE
  6. GABAPENTIN. [Concomitant]
     Active Substance: GABAPENTIN
  7. LEVOTHYROXINE SODIUM. [Concomitant]
     Active Substance: LEVOTHYROXINE SODIUM
  8. ACETAMINOPHEN. [Concomitant]
     Active Substance: ACETAMINOPHEN
  9. FLUCONAZOLE. [Concomitant]
     Active Substance: FLUCONAZOLE
  10. CALCIUM ACETATE. [Concomitant]
     Active Substance: CALCIUM ACETATE
  11. LISINOPRIL. [Concomitant]
     Active Substance: LISINOPRIL
  12. HYDROCODONE BITARTRATE AND ACETAMINOPHEN [Concomitant]
     Active Substance: ACETAMINOPHEN\HYDROCODONE BITARTRATE
  13. LOSARTAN. [Concomitant]
     Active Substance: LOSARTAN

REACTIONS (3)
  - Cardiac disorder [Unknown]
  - Fluid retention [Unknown]
  - Dyspnoea [Unknown]

NARRATIVE: CASE EVENT DATE: 20160314
